FAERS Safety Report 9971095 (Version 1)
Quarter: 2014Q1

REPORT INFORMATION
  Report Type: Report from Study
  Country: US (occurrence: US)
  Receive Date: 20140306
  Receipt Date: 20140306
  Transmission Date: 20141002
  Serious: No
  Sender: FDA-Public Use
  Company Number: US-ABBVIE-13P-163-1149308-00

PATIENT
  Age: 50 Year
  Sex: Female

DRUGS (5)
  1. HUMIRA [Suspect]
     Indication: PSORIASIS
     Dates: start: 20130821
  2. EFFEXOR [Concomitant]
     Indication: DEPRESSION
     Dosage: 150MG DAILY
  3. TRAZODONE [Concomitant]
     Indication: DEPRESSION
  4. ATIVAN [Concomitant]
     Indication: ANXIETY
  5. LAMICTAL [Concomitant]
     Indication: BIPOLAR DISORDER

REACTIONS (3)
  - Wrong technique in drug usage process [Recovered/Resolved]
  - Incorrect dose administered [Recovered/Resolved]
  - Injection site haemorrhage [Recovered/Resolved]
